FAERS Safety Report 21079644 (Version 1)
Quarter: 2022Q3

REPORT INFORMATION
  Report Type: Spontaneous
  Country: US (occurrence: US)
  Receive Date: 20220714
  Receipt Date: 20220714
  Transmission Date: 20221026
  Serious: No
  Sender: FDA-Public Use
  Company Number: US-PRINSTON PHARMACEUTICAL INC.-2021PRN00371

PATIENT
  Sex: Male

DRUGS (3)
  1. LISINOPRIL [Suspect]
     Active Substance: LISINOPRIL
     Dosage: 20 MG, 1X/DAY
  2. LISINOPRIL [Suspect]
     Active Substance: LISINOPRIL
     Dosage: 30 MG, 1X/DAY
  3. LISINOPRIL [Suspect]
     Active Substance: LISINOPRIL
     Dosage: 40 MG, 1X/DAY

REACTIONS (2)
  - Weight decreased [Not Recovered/Not Resolved]
  - Drug ineffective [Unknown]
